FAERS Safety Report 14129669 (Version 2)
Quarter: 2018Q1

REPORT INFORMATION
  Report Type: Report from Study
  Country: US (occurrence: US)
  Receive Date: 20171026
  Receipt Date: 20180122
  Transmission Date: 20180508
  Serious: No
  Sender: FDA-Public Use
  Company Number: US-AMGEN-USASL2017120691

PATIENT
  Age: 61 Year
  Sex: Female

DRUGS (3)
  1. REPATHA [Suspect]
     Active Substance: EVOLOCUMAB
     Indication: PRODUCT USED FOR UNKNOWN INDICATION
     Dosage: UNK
     Route: 065
  2. PRALUENT [Concomitant]
     Active Substance: ALIROCUMAB
     Dosage: UNK, QMO
     Route: 065
  3. PRALUENT [Concomitant]
     Active Substance: ALIROCUMAB
     Dosage: UNK, Q2WK
     Route: 065

REACTIONS (3)
  - Headache [Unknown]
  - Injection site bruising [Unknown]
  - Migraine [Not Recovered/Not Resolved]

NARRATIVE: CASE EVENT DATE: 20170805
